FAERS Safety Report 5792356-2 (Version None)
Quarter: 2008Q2

REPORT INFORMATION
  Report Type: 
  Country: None (occurrence: None)
  Receive Date: 20080626
  Receipt Date: 20080311
  Transmission Date: 20081010
  Serious: No
  Sender: FDA-Public Use
  Company Number: US-ASTRAZENECA-2008UW04974

PATIENT
  Age: 21 Year
  Sex: Female
  Weight: 63 kg

DRUGS (4)
  1. PULMICORT FLEXHALER [Suspect]
     Indication: ASTHMA
     Route: 055
  2. PULMICORT FLEXHALER [Suspect]
     Route: 055
  3. VITAMIN TAB [Concomitant]
  4. SINGULAIR [Concomitant]

REACTIONS (4)
  - ASTHMA [None]
  - BRONCHITIS [None]
  - DRUG EXPOSURE BEFORE PREGNANCY [None]
  - PHARYNGOLARYNGEAL PAIN [None]
